FAERS Safety Report 20779145 (Version 1)
Quarter: 2022Q2

REPORT INFORMATION
  Report Type: Spontaneous
  Country: IN (occurrence: IN)
  Receive Date: 20220503
  Receipt Date: 20220503
  Transmission Date: 20220721
  Serious: Yes (Hospitalization, Other)
  Sender: FDA-Public Use
  Company Number: IN-PFIZER INC-2019489874

PATIENT
  Age: 42 Year
  Sex: Male
  Weight: 65.3 kg

DRUGS (8)
  1. CRIZOTINIB [Suspect]
     Active Substance: CRIZOTINIB
     Indication: Non-small cell lung cancer metastatic
     Dosage: UNK
     Dates: start: 20160816, end: 20171123
  2. CRIZOTINIB [Suspect]
     Active Substance: CRIZOTINIB
     Dosage: 250 MG, 2X/DAY
     Route: 048
     Dates: start: 20170104, end: 20181229
  3. CARBOPLATIN [Suspect]
     Active Substance: CARBOPLATIN
     Dosage: UNK
     Dates: start: 20180104
  4. PEMETREXED [Suspect]
     Active Substance: PEMETREXED
     Dosage: UNK
     Dates: start: 20180104
  5. ZOLEDRONIC ACID [Suspect]
     Active Substance: ZOLEDRONIC ACID
     Dosage: 4 MG IN 100 ML NS OVER 30 MINS
     Dates: start: 20180607
  6. ONDANSETRON HYDROCHLORIDE [Concomitant]
     Active Substance: ONDANSETRON HYDROCHLORIDE
     Dosage: 8 MG, UNK (TDAC TO CONTINUE )
  7. ATIVAN [Concomitant]
     Active Substance: LORAZEPAM
     Dosage: 1 MG, AT BED TIME
  8. CERITINIB [Concomitant]
     Active Substance: CERITINIB
     Dosage: 750 MG, DAILY
     Dates: start: 20180308

REACTIONS (14)
  - Vomiting [Recovered/Resolved]
  - Nausea [Recovered/Resolved]
  - Cytopenia [Unknown]
  - Viral infection [Recovered/Resolved]
  - Cerebrovascular accident [Recovering/Resolving]
  - Generalised tonic-clonic seizure [Unknown]
  - Hepatic enzyme increased [Unknown]
  - Aspartate aminotransferase increased [Unknown]
  - Prothrombin time prolonged [Unknown]
  - Pollakiuria [Unknown]
  - Oedema [Unknown]
  - Toothache [Unknown]
  - Neoplasm progression [Unknown]
  - Headache [Recovered/Resolved]

NARRATIVE: CASE EVENT DATE: 20160825
